FAERS Safety Report 18713876 (Version 1)
Quarter: 2021Q1

REPORT INFORMATION
  Report Type: Spontaneous
  Country: CN (occurrence: CN)
  Receive Date: 20210107
  Receipt Date: 20210107
  Transmission Date: 20210419
  Serious: Yes (Life-Threatening, Hospitalization, Other)
  Sender: FDA-Public Use
  Company Number: CN-PRINSTON PHARMACEUTICAL INC.-2020PRN00449

PATIENT
  Age: 37 Year
  Sex: Male

DRUGS (5)
  1. VORICONAZOLE. [Suspect]
     Active Substance: VORICONAZOLE
     Dosage: 200 MG EVERY 12 H
     Route: 048
     Dates: start: 2019
  2. VORICONAZOLE. [Suspect]
     Active Substance: VORICONAZOLE
     Indication: ASPERGILLUS INFECTION
     Dosage: 200 MG EVERY 12 H
     Route: 048
     Dates: start: 2019
  3. VORICONAZOLE. [Suspect]
     Active Substance: VORICONAZOLE
     Dosage: 175 MG EVERY 12 H
     Route: 048
     Dates: start: 2019
  4. VORICONAZOLE. [Suspect]
     Active Substance: VORICONAZOLE
     Dosage: 300 MG EVERY 12 H
     Route: 048
     Dates: start: 2019
  5. VORICONAZOLE. [Suspect]
     Active Substance: VORICONAZOLE
     Dosage: 150 MG EVERY 12 H
     Dates: start: 2019

REACTIONS (4)
  - Cystitis haemorrhagic [Recovered/Resolved]
  - Urinary bladder rupture [Recovered/Resolved]
  - Hypovolaemia [Recovered/Resolved]
  - Cerebral infarction [Recovered/Resolved]

NARRATIVE: CASE EVENT DATE: 2019
